FAERS Safety Report 17641748 (Version 1)
Quarter: 2020Q2

REPORT INFORMATION
  Report Type: Report from Study
  Country: US (occurrence: US)
  Receive Date: 20200407
  Receipt Date: 20200407
  Transmission Date: 20200713
  Serious: Yes (Other)
  Sender: FDA-Public Use
  Company Number: US-BEH-2020115612

PATIENT
  Age: 59 Year
  Sex: Male
  Weight: 92.97 kg

DRUGS (1)
  1. ZEMAIRA [Suspect]
     Active Substance: .ALPHA.1-PROTEINASE INHIBITOR HUMAN
     Indication: ALPHA-1 ANTITRYPSIN DEFICIENCY
     Dosage: 4 DOSES
     Route: 042

REACTIONS (3)
  - Vision blurred [Unknown]
  - Hypoaesthesia [Unknown]
  - Pruritus [Unknown]
